FAERS Safety Report 19719698 (Version 1)
Quarter: 2021Q3

REPORT INFORMATION
  Report Type: Other
  Country: US (occurrence: US)
  Receive Date: 20210818
  Receipt Date: 20210818
  Transmission Date: 20211014
  Serious: No
  Sender: FDA-Public Use
  Company Number: US-ASCENT PHARMACEUTICALS, INC.-2115259

PATIENT
  Age: 64 Year
  Sex: Female

DRUGS (3)
  1. OXYCODONE AND ACETAMINOPHEN [Suspect]
     Active Substance: ACETAMINOPHEN\OXYCODONE HYDROCHLORIDE
     Indication: PAIN
     Route: 048
  2. LISINOPRIL. [Concomitant]
     Active Substance: LISINOPRIL
     Route: 065
  3. ATENOLOL. [Concomitant]
     Active Substance: ATENOLOL
     Route: 065

REACTIONS (6)
  - Palpitations [Recovered/Resolved]
  - Nausea [Recovered/Resolved]
  - Product quality issue [Recovered/Resolved]
  - Drug ineffective [Recovered/Resolved]
  - Product substitution issue [Recovered/Resolved]
  - Headache [Recovered/Resolved]
